FAERS Safety Report 11214754 (Version 3)
Quarter: 2015Q3

REPORT INFORMATION
  Report Type: Report from Study
  Country: BR (occurrence: BR)
  Receive Date: 20150624
  Receipt Date: 20150915
  Transmission Date: 20151125
  Serious: Yes (Hospitalization, Other)
  Sender: FDA-Public Use
  Company Number: BR-ALEXION-A201502266

PATIENT

DRUGS (1)
  1. SOLIRIS [Suspect]
     Active Substance: ECULIZUMAB
     Indication: PAROXYSMAL NOCTURNAL HAEMOGLOBINURIA
     Dosage: 900 MG, Q2W
     Route: 042
     Dates: start: 20141103

REACTIONS (30)
  - Malaise [Recovered/Resolved]
  - Blood bilirubin increased [Unknown]
  - Blood albumin abnormal [Recovered/Resolved]
  - Pyrexia [Recovered/Resolved]
  - Asthenia [Recovered/Resolved]
  - Dizziness [Recovered/Resolved]
  - Nausea [Recovered/Resolved]
  - Blood lactic acid abnormal [Unknown]
  - Jaundice [Not Recovered/Not Resolved]
  - Gamma-glutamyltransferase abnormal [Unknown]
  - Polymerase chain reaction [Unknown]
  - Amylase abnormal [Unknown]
  - Blood urea abnormal [Unknown]
  - Aspartate aminotransferase abnormal [Unknown]
  - Blood sodium abnormal [Recovered/Resolved]
  - Globulin abnormal [Recovered/Resolved]
  - Laboratory test abnormal [Unknown]
  - Blood creatinine abnormal [Recovered/Resolved]
  - White blood cell disorder [Unknown]
  - Back pain [Recovered/Resolved]
  - Haemoglobin abnormal [Unknown]
  - Abdominal pain [Recovered/Resolved]
  - Chromaturia [Recovered/Resolved]
  - Blood lactate dehydrogenase abnormal [Unknown]
  - Blood alkaline phosphatase abnormal [Unknown]
  - Haematocrit abnormal [Unknown]
  - Platelet count abnormal [Unknown]
  - Alanine aminotransferase abnormal [Unknown]
  - Pyrexia [Recovered/Resolved]
  - Protein total abnormal [Recovered/Resolved]

NARRATIVE: CASE EVENT DATE: 20150608
